FAERS Safety Report 9550032 (Version 5)
Quarter: 2014Q1

REPORT INFORMATION
  Report Type: Spontaneous
  Country: SE (occurrence: SE)
  Receive Date: 20130924
  Receipt Date: 20140307
  Transmission Date: 20141002
  Serious: Yes (Hospitalization)
  Sender: FDA-Public Use
  Company Number: SE-GLAXOSMITHKLINE-B0924816A

PATIENT
  Age: 46 Year
  Sex: Male

DRUGS (2)
  1. VOTRIENT [Suspect]
     Indication: RENAL CANCER METASTATIC
     Route: 048
     Dates: start: 20130318, end: 20130725
  2. SUTENT [Concomitant]
     Indication: RENAL CANCER
     Dates: start: 20120125

REACTIONS (4)
  - Eye excision [Unknown]
  - Injury corneal [Recovered/Resolved]
  - Disease progression [Unknown]
  - Ulcerative keratitis [Recovered/Resolved with Sequelae]
